FAERS Safety Report 6123507-8 (Version None)
Quarter: 2009Q1

REPORT INFORMATION
  Report Type: 
  Country: None (occurrence: None)
  Receive Date: 20090318
  Receipt Date: 20090306
  Transmission Date: 20090719
  Serious: Yes (Hospitalization)
  Sender: FDA-Public Use
  Company Number: DE-ROCHE-621134

PATIENT
  Sex: Male
  Weight: 83 kg

DRUGS (2)
  1. PEG-INTERFERON ALFA 2A (RO 25-8310) [Suspect]
     Route: 058
     Dates: start: 20081105, end: 20081230
  2. RIBAVIRIN [Suspect]
     Route: 048
     Dates: start: 20081105, end: 20081230

REACTIONS (2)
  - APHASIA [None]
  - NERVOUS SYSTEM DISORDER [None]
